FAERS Safety Report 5763954-7 (Version None)
Quarter: 2008Q2

REPORT INFORMATION
  Report Type: 
  Country: None (occurrence: None)
  Receive Date: 20080606
  Receipt Date: 20080606
  Transmission Date: 20081010
  Serious: No
  Sender: FDA-Public Use
  Company Number: None

PATIENT
  Age: 43 Year
  Sex: Male
  Weight: 81.6475 kg

DRUGS (1)
  1. DIPENTUM [Suspect]
     Indication: CROHN'S DISEASE
     Dosage: 250MG 2 TWICE/DAY PO
     Route: 048
     Dates: start: 19920101, end: 20080606

REACTIONS (1)
  - WALDENSTROM'S MACROGLOBULINAEMIA [None]
